FAERS Safety Report 6282382-1 (Version None)
Quarter: 2009Q3

REPORT INFORMATION
  Report Type: 
  Country: None (occurrence: None)
  Receive Date: 20090724
  Receipt Date: 20090715
  Transmission Date: 20100115
  Serious: Yes (Hospitalization)
  Sender: FDA-Public Use
  Company Number: US-AVENTIS-200915246GDDC

PATIENT
  Age: 57 Year
  Sex: Female
  Weight: 120.66 kg

DRUGS (17)
  1. DOCETAXEL [Suspect]
     Route: 042
     Dates: start: 20090122, end: 20090415
  2. CYTOXAN [Suspect]
     Route: 042
     Dates: start: 20090122, end: 20090415
  3. ADRIAMYCIN PFS [Suspect]
     Route: 042
     Dates: start: 20090122, end: 20090415
  4. METOPROLOL SUCCINATE [Concomitant]
     Route: 048
  5. HYDROCHLOROTHIAZIDE [Concomitant]
     Route: 048
  6. LORTAB [Concomitant]
     Dosage: DOSE: UNK
  7. DECADRON [Concomitant]
  8. COMPAZINE [Concomitant]
  9. EMEND [Concomitant]
     Dosage: DOSE: UNK
  10. PROTONIX [Concomitant]
  11. TYLENOL [Concomitant]
     Dosage: DOSE: UNK
  12. CLARITIN [Concomitant]
     Dosage: DOSE: UNK
  13. HYDRALAZINE HCL [Concomitant]
  14. TAGAMET [Concomitant]
     Route: 042
  15. ATIVAN [Concomitant]
     Route: 042
  16. NEULASTA [Concomitant]
     Route: 058
  17. BENADRYL [Concomitant]
     Route: 042

REACTIONS (1)
  - ENCEPHALOPATHY [None]
